FAERS Safety Report 9820037 (Version 1)
Quarter: 2013Q4

REPORT INFORMATION
  Report Type: Spontaneous
  Country: US (occurrence: None)
  Receive Date: 20131223
  Receipt Date: 20131223
  Transmission Date: 20140711
  Serious: No
  Sender: FDA-Public Use
  Company Number: 218348

PATIENT
  Sex: Female

DRUGS (2)
  1. PICATO [Suspect]
     Indication: ACTINIC KERATOSIS
     Route: 061
     Dates: start: 20120708
  2. MERCATOPURINE (MERCAPTPURINE) (0.015 MCG) [Concomitant]

REACTIONS (4)
  - Erythema [None]
  - Pruritus [None]
  - Swelling [None]
  - Pain [None]
